FAERS Safety Report 20073545 (Version 1)
Quarter: 2021Q4

REPORT INFORMATION
  Report Type: Spontaneous
  Country: US (occurrence: None)
  Receive Date: 20211112
  Receipt Date: 20211112
  Transmission Date: 20220303
  Serious: No
  Sender: FDA-Public Use
  Company Number: None

PATIENT
  Sex: Female

DRUGS (1)
  1. KISQALI [Suspect]
     Active Substance: RIBOCICLIB
     Indication: Breast cancer
     Dosage: OTHER FREQUENCY : DAILY FOR 21 DAYS;?
     Route: 048
     Dates: start: 20211013, end: 20211020

REACTIONS (5)
  - Cough [None]
  - Dyspnoea [None]
  - Chest discomfort [None]
  - Headache [None]
  - Nausea [None]
